FAERS Safety Report 11140570 (Version 1)
Quarter: 2015Q2

REPORT INFORMATION
  Report Type: Spontaneous
  Country: US (occurrence: US)
  Receive Date: 20150525
  Receipt Date: 20150525
  Transmission Date: 20150821
  Serious: Yes (Other)
  Sender: FDA-Public Use
  Company Number: US-JNJFOC-20140208735

PATIENT
  Sex: Male

DRUGS (2)
  1. RISPERDAL [Suspect]
     Active Substance: RISPERIDONE
     Indication: AUTISM SPECTRUM DISORDER
     Route: 048
     Dates: start: 2001, end: 2005
  2. RISPERDAL [Suspect]
     Active Substance: RISPERIDONE
     Indication: AUTISM
     Route: 048
     Dates: start: 2001, end: 2005

REACTIONS (7)
  - Aggression [Unknown]
  - Intestinal obstruction [Unknown]
  - Weight increased [Unknown]
  - Restlessness [Unknown]
  - Gynaecomastia [Recovering/Resolving]
  - Emotional disorder [Unknown]
  - Agitation [Unknown]
